FAERS Safety Report 23966822 (Version 1)
Quarter: 2024Q2

REPORT INFORMATION
  Report Type: Spontaneous
  Country: CN (occurrence: CN)
  Receive Date: 20240612
  Receipt Date: 20240612
  Transmission Date: 20240716
  Serious: Yes (Hospitalization)
  Sender: FDA-Public Use
  Company Number: CN-PFIZER INC-PV202400075387

PATIENT
  Age: 48 Year
  Sex: Male

DRUGS (1)
  1. LINEZOLID [Suspect]
     Active Substance: LINEZOLID
     Indication: Pneumonia
     Dosage: 0.6 G, 2X/DAY
     Route: 041
     Dates: start: 20240528, end: 20240602

REACTIONS (1)
  - Rhabdomyolysis [Recovering/Resolving]

NARRATIVE: CASE EVENT DATE: 20240602
